FAERS Safety Report 12519472 (Version 1)
Quarter: 2016Q3

REPORT INFORMATION
  Report Type: Report from Study
  Country: US (occurrence: US)
  Receive Date: 20160701
  Receipt Date: 20160701
  Transmission Date: 20161109
  Serious: Yes (Other)
  Sender: FDA-Public Use
  Company Number: US-AMGEN-USASL2016077570

PATIENT
  Age: 76 Year
  Sex: Female
  Weight: 53.52 kg

DRUGS (8)
  1. CLOPIDOGREL [Concomitant]
     Active Substance: CLOPIDOGREL BISULFATE
     Dosage: 75 MG, UNK
     Route: 048
     Dates: start: 20160328
  2. NITROFURANTOIN. [Concomitant]
     Active Substance: NITROFURANTOIN
     Dosage: 50 MG, QD
     Dates: start: 20160315
  3. REPATHA [Suspect]
     Active Substance: EVOLOCUMAB
     Indication: DYSLIPIDAEMIA
     Dosage: 140 MG, Q2WK
     Route: 065
     Dates: start: 201511
  4. RESTASIS [Concomitant]
     Active Substance: CYCLOSPORINE
     Dosage: 0.05 %, UNK
     Dates: start: 20151229
  5. VERAPAMIL [Concomitant]
     Active Substance: VERAPAMIL HYDROCHLORIDE
     Dosage: 40 MG, UNK
     Route: 048
     Dates: start: 20160303
  6. NITROGLYCERIN. [Concomitant]
     Active Substance: NITROGLYCERIN
     Dosage: 40 MUG, UNK
     Dates: start: 201508
  7. VITAMIN C [Concomitant]
     Active Substance: ASCORBIC ACID
     Dosage: UNK
     Dates: start: 20150309
  8. MONTELUKAST [Concomitant]
     Active Substance: MONTELUKAST SODIUM
     Dosage: 10 MG, UNK
     Route: 048
     Dates: start: 20160112

REACTIONS (1)
  - Cataract [Not Recovered/Not Resolved]

NARRATIVE: CASE EVENT DATE: 201511
